FAERS Safety Report 4378189-2 (Version None)
Quarter: 2004Q2

REPORT INFORMATION
  Report Type: 
  Country: None (occurrence: None)
  Receive Date: 20040614
  Receipt Date: 20040614
  Transmission Date: 20050107
  Serious: No
  Sender: FDA-Public Use
  Company Number: None

PATIENT
  Age: 69 Year
  Sex: Male
  Weight: 77.5651 kg

DRUGS (2)
  1. AMIFOSTINE [Suspect]
     Indication: PROPHYLAXIS
     Dosage: 500 MG SQ
     Dates: start: 20040524, end: 20040525
  2. AMIFOSTINE [Suspect]
     Indication: RADIATION INJURY
     Dosage: 500 MG SQ
     Dates: start: 20040524, end: 20040525

REACTIONS (2)
  - HYPOTENSION [None]
  - SYNCOPE [None]
